FAERS Safety Report 7748269-X (Version None)
Quarter: 2011Q3

REPORT INFORMATION
  Report Type: 
  Country: None (occurrence: None)
  Receive Date: 20110913
  Receipt Date: 20110907
  Transmission Date: 20111222
  Serious: Yes (Hospitalization, Other)
  Sender: FDA-Public Use
  Company Number: US-ABBOTT-11P-163-0852368-00

PATIENT
  Sex: Female

DRUGS (2)
  1. HUMIRA [Suspect]
     Route: 058
     Dates: start: 20110601
  2. HUMIRA [Suspect]
     Indication: RHEUMATOID ARTHRITIS
     Route: 058
     Dates: start: 20050101, end: 20080101

REACTIONS (1)
  - OSTEOARTHRITIS [None]
